FAERS Safety Report 23610058 (Version 2)
Quarter: 2024Q4

REPORT INFORMATION
  Report Type: Spontaneous
  Country: BR (occurrence: BR)
  Receive Date: 20240308
  Receipt Date: 20241017
  Transmission Date: 20250114
  Serious: Yes (Other)
  Sender: CELLTRION
  Company Number: BR-CELLTRION INC.-2023BR011118

PATIENT

DRUGS (4)
  1. INFLIXIMAB [Suspect]
     Active Substance: INFLIXIMAB
     Indication: Crohn^s disease
     Dosage: 4 AMPOULES OF 100 MG (400 MG TOTAL) EVERY 8 WEEKS
     Route: 042
     Dates: start: 20220921
  2. INFLIXIMAB [Suspect]
     Active Substance: INFLIXIMAB
     Dosage: 4 AMPOULES OF 100 MG (400 MG TOTAL) EVERY 8 WEEKS
     Route: 042
     Dates: start: 20240223
  3. INFLIXIMAB [Suspect]
     Active Substance: INFLIXIMAB
     Dosage: 4 AMPOULES OF 100 MG (400 MG TOTAL) EVERY 8 WEEKS
     Route: 042
     Dates: start: 20240930
  4. AZATHIOPRINE [Concomitant]
     Active Substance: AZATHIOPRINE
     Indication: Crohn^s disease
     Dosage: 1 PILL A DAY/1 TABLET A DAY
     Route: 048
     Dates: start: 2020

REACTIONS (8)
  - Haematochezia [Recovered/Resolved]
  - Feeling abnormal [Unknown]
  - Muscle fatigue [Recovered/Resolved]
  - Asthenia [Recovered/Resolved]
  - Pain in extremity [Not Recovered/Not Resolved]
  - Headache [Recovered/Resolved]
  - Chest pain [Recovered/Resolved]
  - Underdose [Unknown]
